FAERS Safety Report 4760211-2 (Version None)
Quarter: 2005Q3

REPORT INFORMATION
  Report Type: 
  Country: None (occurrence: None)
  Receive Date: 20050902
  Receipt Date: 20050822
  Transmission Date: 20060218
  Serious: Yes (Hospitalization)
  Sender: FDA-Public Use
  Company Number: GB-JNJFOC-20050900020

PATIENT
  Sex: Male

DRUGS (3)
  1. DUROGESIC D TRANS [Suspect]
     Route: 062
  2. DUROGESIC D TRANS [Suspect]
     Route: 062
  3. DUROGESIC D TRANS [Suspect]
     Indication: PAIN
     Route: 062

REACTIONS (1)
  - MONOPLEGIA [None]
